FAERS Safety Report 4713999-0 (Version None)
Quarter: 2005Q3

REPORT INFORMATION
  Report Type: 
  Country: None (occurrence: None)
  Receive Date: 20050714
  Receipt Date: 20050706
  Transmission Date: 20060218
  Serious: Yes (Other)
  Sender: FDA-Public Use
  Company Number: BR-BOEHRINGER INGELHEIM PHARMACEUTICALS, INC.-2005-BP-11415BR

PATIENT
  Sex: Female

DRUGS (3)
  1. MICARDIS [Suspect]
     Indication: HYPERTENSION
     Route: 048
     Dates: start: 20001001
  2. FORADIL [Concomitant]
  3. CILOSTAZOL [Concomitant]

REACTIONS (4)
  - ANAEMIA [None]
  - DRY SKIN [None]
  - PAIN OF SKIN [None]
  - PSORIASIS [None]
